FAERS Safety Report 9634752 (Version 2)
Quarter: 2013Q4

REPORT INFORMATION
  Report Type: Spontaneous
  Country: US (occurrence: US)
  Receive Date: 20131021
  Receipt Date: 20131021
  Transmission Date: 20140711
  Serious: No
  Sender: FDA-Public Use
  Company Number: US-PURDUE-USA-2013-0101181

PATIENT
  Sex: Male

DRUGS (6)
  1. BUTRANS [Suspect]
     Indication: PAIN
     Dosage: 5 MCG/HR, UNK
     Route: 062
  2. BUTRANS [Suspect]
     Dosage: 10 MCG/HR, UNK
     Route: 062
  3. BUTRANS [Suspect]
     Dosage: 20 MCG/HR, UNK
     Route: 062
  4. OXYCODONE HYDROCHLORIDE (SIMILAR TO NDA 22-272) [Concomitant]
     Indication: BREAKTHROUGH PAIN
     Dosage: UNK, PRN
     Route: 048
  5. NORCO [Concomitant]
     Indication: BREAKTHROUGH PAIN
     Dosage: UNK, PRN
     Route: 048
  6. PARAFON FORTE [Concomitant]
     Indication: BREAKTHROUGH PAIN
     Dosage: 0.5 TABLET, PRN
     Route: 048

REACTIONS (4)
  - Breakthrough pain [Not Recovered/Not Resolved]
  - Inadequate analgesia [Not Recovered/Not Resolved]
  - Product adhesion issue [Unknown]
  - Product physical issue [Unknown]
